FAERS Safety Report 10188815 (Version 1)
Quarter: 2014Q2

REPORT INFORMATION
  Report Type: Spontaneous
  Country: US (occurrence: US)
  Receive Date: 20140522
  Receipt Date: 20140522
  Transmission Date: 20141212
  Serious: No
  Sender: FDA-Public Use
  Company Number: US-SA-2014SA024604

PATIENT
  Age: 61 Year
  Sex: Female

DRUGS (1)
  1. LANTUS [Suspect]
     Dosage: TAKEN FROM-ABOUT 1 YEAR DOSE:65 UNIT(S)
     Route: 058

REACTIONS (1)
  - Nervousness [Unknown]
